FAERS Safety Report 23904839 (Version 1)
Quarter: 2024Q2

REPORT INFORMATION
  Report Type: Spontaneous
  Country: AU (occurrence: AU)
  Receive Date: 20240527
  Receipt Date: 20240527
  Transmission Date: 20240715
  Serious: Yes (Other)
  Sender: FDA-Public Use
  Company Number: AU-TEVA-VS-3201183

PATIENT
  Age: 69 Year
  Sex: Male

DRUGS (7)
  1. DASATINIB [Suspect]
     Active Substance: DASATINIB
     Route: 065
  2. IMATINIB [Suspect]
     Active Substance: IMATINIB
     Route: 065
  3. ASCIMINIB [Suspect]
     Active Substance: ASCIMINIB
     Route: 065
  4. NILOTINIB [Suspect]
     Active Substance: NILOTINIB
     Route: 065
  5. HYDROXYUREA [Concomitant]
     Active Substance: HYDROXYUREA
  6. INTERFERON [Concomitant]
     Active Substance: INTERFERON
  7. PONATINIB [Concomitant]
     Active Substance: PONATINIB

REACTIONS (9)
  - Aortic stenosis [Unknown]
  - Anal incontinence [Unknown]
  - Cytomegalovirus colitis [Unknown]
  - Diarrhoea [Unknown]
  - Pleural effusion [Unknown]
  - Pulmonary hypertension [Unknown]
  - Pyrexia [Unknown]
  - Remission not achieved [Unknown]
  - Treatment failure [Unknown]
